FAERS Safety Report 11287610 (Version 1)
Quarter: 2015Q3

REPORT INFORMATION
  Report Type: Spontaneous
  Country: US (occurrence: None)
  Receive Date: 20150720
  Receipt Date: 20150720
  Transmission Date: 20151125
  Serious: Yes (Life-Threatening, Hospitalization)
  Sender: FDA-Public Use
  Company Number: None

PATIENT
  Age: 68 Year
  Sex: Male

DRUGS (2)
  1. DIPHENHYDRAMINE. [Suspect]
     Active Substance: DIPHENHYDRAMINE
     Indication: SURGERY
     Dosage: ML SQ
     Route: 058
     Dates: start: 20150319, end: 20150319
  2. LIDOCAINE. [Suspect]
     Active Substance: LIDOCAINE
     Indication: SURGERY
     Dates: start: 20150319, end: 20150319

REACTIONS (3)
  - Hypothermia [None]
  - Drug interaction [None]
  - Hypotension [None]

NARRATIVE: CASE EVENT DATE: 20150319
